FAERS Safety Report 4265564-X (Version None)
Quarter: 2004Q1

REPORT INFORMATION
  Report Type: 
  Country: None (occurrence: None)
  Receive Date: 20040106
  Receipt Date: 20031223
  Transmission Date: 20041129
  Serious: Yes (Other)
  Sender: FDA-Public Use
  Company Number: US-JNJFOC-20031006227

PATIENT
  Age: 41 Year
  Sex: Male

DRUGS (2)
  1. SPORANOX [Suspect]
     Indication: BLASTOMYCOSIS
     Dosage: 200 MG, 2 IN 1 DAY, ORAL
     Route: 048
     Dates: start: 20020129, end: 20020720
  2. NEXIUM [Concomitant]

REACTIONS (10)
  - ASTHENIA [None]
  - BURNING SENSATION [None]
  - FEELING ABNORMAL [None]
  - HYPOAESTHESIA [None]
  - LUMBAR RADICULOPATHY [None]
  - MOVEMENT DISORDER [None]
  - NEUROPATHY [None]
  - PAIN [None]
  - PARAESTHESIA [None]
  - PERONEAL NERVE PALSY [None]
